FAERS Safety Report 13900160 (Version 1)
Quarter: 2017Q3

REPORT INFORMATION
  Report Type: Other
  Country: None (occurrence: GB)
  Receive Date: 20170823
  Receipt Date: 20170823
  Transmission Date: 20171127
  Serious: Yes (Death)
  Sender: FDA-Public Use
  Company Number: GB-MEDAC PHARMA, INC.-2025007

PATIENT
  Age: 69 Year
  Sex: Male

DRUGS (1)
  1. METHOTREXATE. [Suspect]
     Active Substance: METHOTREXATE
     Indication: PSORIASIS
     Dates: start: 1999, end: 2015

REACTIONS (7)
  - Drug monitoring procedure not performed [Fatal]
  - Viral upper respiratory tract infection [Unknown]
  - Pneumonia [Fatal]
  - Poor quality sleep [Unknown]
  - Hepatic cirrhosis [Fatal]
  - Kidney infection [Fatal]
  - Hepatic cancer [Fatal]

NARRATIVE: CASE EVENT DATE: 201601
